FAERS Safety Report 15968602 (Version 2)
Quarter: 2019Q1

REPORT INFORMATION
  Report Type: Spontaneous
  Country: IT (occurrence: IT)
  Receive Date: 20190215
  Receipt Date: 20190228
  Transmission Date: 20190418
  Serious: Yes (Other)
  Sender: FDA-Public Use
  Company Number: IT-PFIZER INC-2019065568

PATIENT
  Age: 49 Year
  Sex: Female

DRUGS (1)
  1. DOSTINEX [Suspect]
     Active Substance: CABERGOLINE
     Dosage: 3 MG, WEEKLY

REACTIONS (3)
  - Aortic valve incompetence [Unknown]
  - Blood prolactin increased [Unknown]
  - Cardiac valve disease [Unknown]
